FAERS Safety Report 25793356 (Version 1)
Quarter: 2025Q3

REPORT INFORMATION
  Report Type: Other
  Country: US (occurrence: US)
  Receive Date: 20250911
  Receipt Date: 20250911
  Transmission Date: 20251020
  Serious: Yes (Life-Threatening, Hospitalization, Disabling)
  Sender: BRECKENRIDGE PHARMACEUTICAL, INC.
  Company Number: US-Breckenridge Pharmaceutical, Inc.-2184367

PATIENT
  Age: 59 Year
  Sex: Female

DRUGS (21)
  1. MONTELUKAST [Suspect]
     Active Substance: MONTELUKAST
  2. ACETAZOLAMIDE [Suspect]
     Active Substance: ACETAZOLAMIDE
  3. ALBUTEROL [Concomitant]
     Active Substance: ALBUTEROL
  4. ERGOCALCIFEROL [Concomitant]
     Active Substance: ERGOCALCIFEROL
  5. LEVOCETIRIZINE DIHYDROCHLORIDE [Concomitant]
     Active Substance: LEVOCETIRIZINE DIHYDROCHLORIDE
  6. TRIAMCINOLONE ACETONIDE [Concomitant]
     Active Substance: TRIAMCINOLONE ACETONIDE
  7. SEMAGLUTIDE [Concomitant]
     Active Substance: SEMAGLUTIDE
  8. PRAVASTATIN [Concomitant]
     Active Substance: PRAVASTATIN
  9. OXYCODONE AND ACETAMINOPHEN [Suspect]
     Active Substance: ACETAMINOPHEN\OXYCODONE HYDROCHLORIDE
  10. NAPROXEN [Concomitant]
     Active Substance: NAPROXEN
  11. MELOXICAM [Concomitant]
     Active Substance: MELOXICAM
  12. GABAPENTIN [Concomitant]
     Active Substance: GABAPENTIN
  13. FLUTICASONE [Concomitant]
     Active Substance: FLUTICASONE
  14. FERROUS SULFATE [Concomitant]
     Active Substance: FERROUS SULFATE
  15. DOXEPIN HYDROCHLORIDE [Concomitant]
     Active Substance: DOXEPIN HYDROCHLORIDE
  16. DULOXETINE [Suspect]
     Active Substance: DULOXETINE
  17. BACLOFEN [Concomitant]
     Active Substance: BACLOFEN
  18. ATENOLOL [Concomitant]
     Active Substance: ATENOLOL
  19. BUPROPION [Concomitant]
     Active Substance: BUPROPION
  20. FLUTICASONE PROPIONATE AND SALMETEROL [Concomitant]
     Active Substance: FLUTICASONE PROPIONATE\SALMETEROL XINAFOATE
  21. ASPIRIN [Concomitant]
     Active Substance: ASPIRIN

REACTIONS (5)
  - Encephalopathy [Recovered/Resolved]
  - Mental status changes [Recovered/Resolved]
  - Extradural abscess [Unknown]
  - Drug interaction [Unknown]
  - Osteomyelitis [Unknown]
